FAERS Safety Report 8603912-8 (Version None)
Quarter: 2012Q3

REPORT INFORMATION
  Report Type: 
  Country: None (occurrence: None)
  Receive Date: 20120820
  Receipt Date: 20120813
  Transmission Date: 20120928
  Serious: Yes (Hospitalization)
  Sender: FDA-Public Use
  Company Number: DE-AMGEN-DEUCT2012048718

PATIENT
  Age: 72 Year
  Sex: Female
  Weight: 103 kg

DRUGS (11)
  1. ETANERCEPT [Suspect]
     Indication: PRODUCT USED FOR UNKNOWN INDICATION
     Dosage: UNK
     Dates: start: 20110901, end: 20111101
  2. CORDALIN                           /00802602/ [Concomitant]
     Indication: ESSENTIAL HYPERTENSION
     Dosage: UNK
  3. METFORMIN HYDROCHLORIDE [Concomitant]
     Indication: TYPE 2 DIABETES MELLITUS
     Dosage: UNK
  4. DIOVAN [Concomitant]
     Dosage: UNK
  5. METHOTREXATE SODIUM [Concomitant]
     Dosage: 20 MG, WEEKLY (PARENTERAL)
     Route: 051
     Dates: start: 20110501
  6. DIOVAN [Concomitant]
  7. FALITHROM [Concomitant]
     Dosage: UNK
  8. LEVOTHYROXINE SODIUM [Concomitant]
     Dosage: UNK
  9. OMEPRAZOLE [Concomitant]
     Dosage: UNK
     Dates: start: 20110901
  10. CORDALIN [Concomitant]
     Indication: ESSENTIAL HYPERTENSION
  11. PREDNISOLONE [Concomitant]
     Dosage: UNK
     Dates: start: 20091101

REACTIONS (2)
  - ACUTE MYOCARDIAL INFARCTION [None]
  - CORONARY ARTERY DISEASE [None]
